FAERS Safety Report 13554158 (Version 1)
Quarter: 2017Q2

REPORT INFORMATION
  Report Type: Spontaneous
  Country: US (occurrence: US)
  Receive Date: 20170517
  Receipt Date: 20170517
  Transmission Date: 20170830
  Serious: Yes (Hospitalization)
  Sender: FDA-Public Use
  Company Number: US-BAYER-2017-087879

PATIENT
  Age: 77 Year
  Sex: Male

DRUGS (3)
  1. HEPARIN [Concomitant]
     Active Substance: HEPARIN SODIUM
     Indication: ANTICOAGULANT THERAPY
     Dosage: UNK
  2. CLOPIDOGREL [Suspect]
     Active Substance: CLOPIDOGREL BISULFATE
     Indication: ANTIPLATELET THERAPY
     Dosage: UNK
  3. BAYER ASPIRIN [Suspect]
     Active Substance: ASPIRIN
     Indication: ANTIPLATELET THERAPY
     Dosage: UNK

REACTIONS (9)
  - Headache [Unknown]
  - Dysarthria [Unknown]
  - Confusional state [Unknown]
  - Agitation [Unknown]
  - Hemiparesis [Unknown]
  - Labelled drug-drug interaction medication error [None]
  - Cerebral hyperperfusion syndrome [Unknown]
  - Basal ganglia haemorrhage [Unknown]
  - Hypertension [Unknown]
